FAERS Safety Report 15669875 (Version 1)
Quarter: 2018Q4

REPORT INFORMATION
  Report Type: Spontaneous
  Country: US (occurrence: US)
  Receive Date: 20181129
  Receipt Date: 20181129
  Transmission Date: 20190205
  Serious: No
  Sender: FDA-Public Use
  Company Number: US-GLAXOSMITHKLINE-US2018GSK211456

PATIENT
  Sex: Female

DRUGS (1)
  1. VENTOLIN HFA [Suspect]
     Active Substance: ALBUTEROL SULFATE
     Indication: PRODUCT USED FOR UNKNOWN INDICATION
     Dosage: UNK ?G, UNK
     Dates: start: 2016

REACTIONS (5)
  - Dyspnoea [Unknown]
  - Dyskinesia [Unknown]
  - Product dose omission [Unknown]
  - Product availability issue [Unknown]
  - Tic [Unknown]
